FAERS Safety Report 4447778-9 (Version None)
Quarter: 2004Q3

REPORT INFORMATION
  Report Type: 
  Country: None (occurrence: None)
  Receive Date: 20040913
  Receipt Date: 20040629
  Transmission Date: 20050211
  Serious: Yes (Other)
  Sender: FDA-Public Use
  Company Number: JP-JNJFOC-20040702326

PATIENT
  Sex: Male

DRUGS (15)
  1. RISPERDAL [Suspect]
  2. RISPERDAL [Suspect]
     Indication: SCHIZOPHRENIA
  3. LORAZEPAM [Concomitant]
  4. BIPERIDEN HYDROCHLORIDE [Concomitant]
  5. CHLORPROMAZINE TANNATE [Concomitant]
  6. CHLORPROMAZINE TANNATE [Concomitant]
  7. CHLORPROMAZINE TANNATE [Concomitant]
  8. CHLORPROMAZINE TANNATE [Concomitant]
  9. CHLORPROMAZINE TANNATE [Concomitant]
  10. CHLORPROMAZINE TANNATE [Concomitant]
  11. CHLORPROMAZINE TANNATE [Concomitant]
  12. CHLORPROMAZINE TANNATE [Concomitant]
  13. BROTIZOLAM [Concomitant]
  14. BROTIZOLAM [Concomitant]
  15. BROTIZOLAM [Concomitant]

REACTIONS (2)
  - HAEMOGLOBIN DECREASED [None]
  - WHITE BLOOD CELL COUNT DECREASED [None]
